FAERS Safety Report 24627486 (Version 2)
Quarter: 2024Q4

REPORT INFORMATION
  Report Type: Spontaneous
  Country: NL (occurrence: NL)
  Receive Date: 20241116
  Receipt Date: 20241129
  Transmission Date: 20250115
  Serious: Yes (Life-Threatening, Hospitalization, Disabling)
  Sender: MACLEODS
  Company Number: NL-MLMSERVICE-20241101-PI247662-00217-1

PATIENT

DRUGS (3)
  1. METFORMIN [Suspect]
     Active Substance: METFORMIN HYDROCHLORIDE
     Indication: Type 2 diabetes mellitus
     Dosage: LINAGLIPTIN/METFORMIN, 2.5/1000 MG, 1 UNIT PER DAY
     Route: 065
  2. AMLODIPINE\PERINDOPRIL [Concomitant]
     Active Substance: AMLODIPINE\PERINDOPRIL
     Indication: Hypertension
     Dosage: PERINDOPRIL/AMLODIPINE, 10/5 MG, 1 UNIT, 1 PER DAY
     Route: 065
  3. GLICLAZIDE [Concomitant]
     Active Substance: GLICLAZIDE
     Indication: Type 2 diabetes mellitus
     Dosage: GLICLAZIDE 60 MG 1 UNIT, 1 PER DAY
     Route: 065

REACTIONS (3)
  - Blindness [Recovered/Resolved]
  - Lactic acidosis [Recovering/Resolving]
  - Drug level increased [Recovering/Resolving]
